FAERS Safety Report 11977433 (Version 2)
Quarter: 2016Q1

REPORT INFORMATION
  Report Type: Spontaneous
  Country: US (occurrence: US)
  Receive Date: 20160129
  Receipt Date: 20160203
  Transmission Date: 20160526
  Serious: No
  Sender: FDA-Public Use
  Company Number: US-BAYER-2016-014691

PATIENT
  Age: 23 Year
  Sex: Female

DRUGS (1)
  1. CIPRO [Suspect]
     Active Substance: CIPROFLOXACIN HYDROCHLORIDE
     Indication: UREAPLASMA INFECTION
     Dosage: 250 MG, TID
     Route: 048

REACTIONS (2)
  - Drug ineffective [None]
  - Exposure during pregnancy [None]
